FAERS Safety Report 5223965-7 (Version None)
Quarter: 2007Q1

REPORT INFORMATION
  Report Type: 
  Country: None (occurrence: None)
  Receive Date: 20070130
  Receipt Date: 20070129
  Transmission Date: 20070707
  Serious: Yes (Other)
  Sender: FDA-Public Use
  Company Number: BR-GLAXOSMITHKLINE-A0637453A

PATIENT
  Age: 25 Year
  Sex: Female

DRUGS (3)
  1. AEROLIN [Suspect]
     Indication: DRUG USE FOR UNKNOWN INDICATION
     Dosage: 4MG UNKNOWN
     Route: 048
     Dates: start: 20070108
  2. BEROTEC [Concomitant]
  3. ATROVENT [Concomitant]

REACTIONS (2)
  - UTERINE CONTRACTIONS DURING PREGNANCY [None]
  - VAGINAL DISCHARGE [None]
